FAERS Safety Report 24065643 (Version 1)
Quarter: 2024Q3

REPORT INFORMATION
  Report Type: Spontaneous
  Country: US (occurrence: None)
  Receive Date: 20240708
  Receipt Date: 20240708
  Transmission Date: 20241017
  Serious: Yes (Other)
  Sender: Public
  Company Number: None

PATIENT
  Age: 22 Year
  Sex: Female
  Weight: 61.23 kg

DRUGS (1)
  1. PARAGARD T 380A [Suspect]
     Active Substance: COPPER

REACTIONS (4)
  - Pregnancy with contraceptive device [None]
  - Device dislocation [None]
  - Device ineffective [None]
  - Exposure during pregnancy [None]

NARRATIVE: CASE EVENT DATE: 20240705
